FAERS Safety Report 6424168-0 (Version None)
Quarter: 2009Q4

REPORT INFORMATION
  Report Type: 
  Country: None (occurrence: None)
  Receive Date: 20091029
  Receipt Date: 20091019
  Transmission Date: 20100525
  Serious: Yes (Life-Threatening)
  Sender: FDA-Public Use
  Company Number: 2009AL006736

PATIENT
  Age: 55 Year
  Sex: Female

DRUGS (1)
  1. LIDOCAINE HYDROCHLORIDE 2% [Suspect]
     Indication: ROTATOR CUFF SYNDROME
     Dosage: 40 MG; IV
     Route: 042

REACTIONS (4)
  - DYSPHAGIA [None]
  - DYSPHONIA [None]
  - PRURITUS [None]
  - TONGUE OEDEMA [None]
